FAERS Safety Report 5519639-5 (Version None)
Quarter: 2007Q4

REPORT INFORMATION
  Report Type: 
  Country: None (occurrence: None)
  Receive Date: 20071116
  Receipt Date: 20071106
  Transmission Date: 20080405
  Serious: Yes (Hospitalization)
  Sender: FDA-Public Use
  Company Number: DE-PURDUE-DEU_2007_0003777

PATIENT
  Age: 72 Year
  Sex: Male
  Weight: 100 kg

DRUGS (3)
  1. TARGIN 10/5 MG RETARDTABLETTEN [Suspect]
     Indication: BACK PAIN
     Dosage: 10 MG, SINGLE
     Route: 048
     Dates: start: 20070925, end: 20070925
  2. OXYGESIC 20 MG [Suspect]
     Indication: BACK PAIN
     Dosage: 20 MG, BID
     Route: 048
     Dates: start: 20070501
  3. BISOPROLOL FUMARATE [Concomitant]

REACTIONS (5)
  - CHEST DISCOMFORT [None]
  - DIZZINESS [None]
  - DYSPNOEA [None]
  - MALAISE [None]
  - PULMONARY EMBOLISM [None]
